FAERS Safety Report 21646075 (Version 1)
Quarter: 2022Q4

REPORT INFORMATION
  Report Type: Spontaneous
  Country: US (occurrence: US)
  Receive Date: 20221126
  Receipt Date: 20221126
  Transmission Date: 20230113
  Serious: Yes (Hospitalization, Other)
  Sender: FDA-Public Use
  Company Number: US-UNITED THERAPEUTICS-UNT-2022-028057

PATIENT
  Sex: Female
  Weight: 75.737 kg

DRUGS (3)
  1. REMODULIN [Suspect]
     Active Substance: TREPROSTINIL
     Indication: Pulmonary arterial hypertension
     Dosage: UNK, CONTINUING
     Route: 058
     Dates: start: 20221026
  2. REMODULIN [Suspect]
     Active Substance: TREPROSTINIL
     Dosage: 0.024 ?G/KG (PHARMACY PRE-FILLED WITH 2.6 ML PER CASSETTE, REMUNITY PUMP RATE 26 MCL PER HOUR), CONT
     Route: 058
     Dates: start: 2022
  3. REMODULIN [Suspect]
     Active Substance: TREPROSTINIL
     Dosage: 0.028 ?G/KG (PHARMACY PRE-FILLED WITH 2.6 ML PER CASSETTE, REMUNITY PUMP RATE 26 MCL PER HOUR), CONT
     Route: 058
     Dates: start: 2022

REACTIONS (5)
  - Atrial fibrillation [Unknown]
  - Oxygen saturation decreased [Unknown]
  - Malaise [Unknown]
  - Laboratory test abnormal [Unknown]
  - Asthenia [Unknown]

NARRATIVE: CASE EVENT DATE: 20220101
